FAERS Safety Report 8376603-9 (Version None)
Quarter: 2012Q2

REPORT INFORMATION
  Report Type: 
  Country: None (occurrence: None)
  Receive Date: 20120522
  Receipt Date: 20120518
  Transmission Date: 20120825
  Serious: Yes (Hospitalization)
  Sender: FDA-Public Use
  Company Number: JP-PFIZER INC-2012111280

PATIENT
  Age: 31 Year
  Sex: Male

DRUGS (3)
  1. ZOLOFT [Suspect]
     Dosage: 75 MG/DAY
     Route: 048
     Dates: start: 20110707
  2. LULLAN [Suspect]
     Dosage: 16 MG/DAY
     Route: 048
     Dates: start: 20110728
  3. MEILAX [Suspect]
     Dosage: 16 MG/DAY
     Route: 048
     Dates: start: 20110623

REACTIONS (2)
  - ALTERED STATE OF CONSCIOUSNESS [None]
  - OVERDOSE [None]
